FAERS Safety Report 11748078 (Version 3)
Quarter: 2016Q1

REPORT INFORMATION
  Report Type: Spontaneous
  Country: US (occurrence: US)
  Receive Date: 20151117
  Receipt Date: 20160203
  Transmission Date: 20160525
  Serious: No
  Sender: FDA-Public Use
  Company Number: US-GLAXOSMITHKLINE-US2015160451

PATIENT
  Age: 30 Year
  Sex: Female
  Weight: 98 kg

DRUGS (25)
  1. TYLENOL [Concomitant]
     Active Substance: ACETAMINOPHEN
     Dosage: 650 MG, UNK (OVER 2 HOURS)
     Route: 048
  2. METHOTREXATE [Suspect]
     Active Substance: METHOTREXATE
     Indication: PRODUCT USED FOR UNKNOWN INDICATION
     Dosage: UNK
  3. DIPHENHYDRAMINE. [Concomitant]
     Active Substance: DIPHENHYDRAMINE
     Dosage: 50 MG, UNK  (OVER TWO HOURS)
  4. DICLOFENAC SODIUM PROLONGED-RELEASE TABLET [Concomitant]
     Dosage: 50 MG, BID
  5. METHYLPREDNISOLONE TABLET [Concomitant]
     Dosage: 4 MG, UNK (FOUR TABLETS FOR 5 DAYS)
  6. SPIRONOLACTONE TABLET [Concomitant]
     Dosage: 25 MG, BID
     Route: 048
  7. SOLU-MEDROL [Concomitant]
     Active Substance: METHYLPREDNISOLONE SODIUM SUCCINATE
     Dosage: 125 MG, UNK (OVER TWO HOURS)
     Route: 042
  8. DICYCLOMINE TABLET [Concomitant]
     Dosage: 20 MG, PRN
     Route: 048
  9. METHYLPREDNISOLONE TABLET [Concomitant]
     Dosage: 4 MG, UNK (TWO TABLETS FOR 5 DAYS)
  10. RESTASIS [Concomitant]
     Active Substance: CYCLOSPORINE
     Dosage: UNK
  11. ATENOLOL TABLET [Concomitant]
     Active Substance: ATENOLOL
     Dosage: 100 MG, QD
  12. METHYLPREDNISOLONE TABLET [Concomitant]
     Dosage: 4 MG, UNK (THREE TABLETS FOR 5 DAYS)
  13. TRAMADOL TABLET [Concomitant]
     Indication: PAIN
     Dosage: 50 MG, PRN (1 TO 2 TABLETS EVERY 8 HOURS AS NEEDED )
     Dates: start: 20151119
  14. DEXILANT PROLONGED-RELEASE CAPSULE [Concomitant]
     Dosage: 60 MG, BID
     Route: 048
  15. GABAPENTIN CAPSULE [Concomitant]
     Active Substance: GABAPENTIN
     Dosage: 300 MG, TID
  16. HYDROXYCHLOROQUINE TABLET [Concomitant]
     Dosage: 200 MG, BID
  17. MELOXICAM TABLET [Concomitant]
     Active Substance: MELOXICAM
     Dosage: 7.5 MG, UNK
  18. METHYLPREDNISOLONE TABLET [Concomitant]
     Dosage: 4 MG, UNK (ONE TABLET FOR 5 DAYS)
  19. SERTRALINE TABLET [Concomitant]
     Active Substance: SERTRALINE HYDROCHLORIDE
     Dosage: 100 MG, QD
     Route: 048
  20. TRETINOIN MICROSPHERES GEL [Concomitant]
     Dosage: UNK
     Route: 061
  21. CYCLOBENZAPRINE TABLET [Concomitant]
     Dosage: 5 MG, PRN (1 TO 2 TABLETS AT NIGHT AS NEEDED )
  22. BENLYSTA [Suspect]
     Active Substance: BELIMUMAB
     Indication: SYSTEMIC LUPUS ERYTHEMATOSUS
     Dosage: 940 MG, UNK (EVERY 4 WEEKS IVPB (INTRAVENOUS PIGGYBACK) AFTER INITIAL LOADING DOSES)
     Route: 042
     Dates: start: 20131111, end: 20150529
  23. HYDROCODONE/ACETAMINOPHEN TABLET [Concomitant]
     Dosage: UNK, QD (HYDROCODONE5MG-ACETAMINOPHEN-325MG TABLET ONE EVERY DAY)
  24. METFORMIN [Concomitant]
     Active Substance: METFORMIN HYDROCHLORIDE
     Dosage: UNK, QD (EXTENDED RELEASE 24 HOUR)
  25. MODAFINIL TABLET [Concomitant]
     Dosage: 200 MG, QD

REACTIONS (3)
  - Dermatitis contact [Unknown]
  - Rash [Unknown]
  - Drug hypersensitivity [Unknown]

NARRATIVE: CASE EVENT DATE: 20150622
